FAERS Safety Report 25956801 (Version 1)
Quarter: 2025Q4

REPORT INFORMATION
  Report Type: Spontaneous
  Country: JP (occurrence: JP)
  Receive Date: 20251024
  Receipt Date: 20251024
  Transmission Date: 20260118
  Serious: Yes (Hospitalization)
  Sender: FERRING
  Company Number: None

PATIENT
  Age: 48 Year
  Sex: Female
  Weight: 52.6 kg

DRUGS (3)
  1. PROGESTERONE [Suspect]
     Active Substance: PROGESTERONE
     Indication: Turner^s syndrome
     Route: 065
  2. ESTROGENS [Suspect]
     Active Substance: ESTROGENS
     Indication: Turner^s syndrome
     Route: 048
  3. DYDROGESTERONE [Suspect]
     Active Substance: DYDROGESTERONE
     Indication: Turner^s syndrome
     Route: 048

REACTIONS (3)
  - Benign lung neoplasm [Recovering/Resolving]
  - Uterine polyp [Unknown]
  - Product use in unapproved indication [Unknown]
